FAERS Safety Report 8840285 (Version 3)
Quarter: 2013Q3

REPORT INFORMATION
  Report Type: Report from Study
  Country: BR (occurrence: BR)
  Receive Date: 20121015
  Receipt Date: 20130711
  Transmission Date: 20140515
  Serious: Yes (Other)
  Sender: FDA-Public Use
  Company Number: BR-US-EMD SERONO, INC.-7166802

PATIENT
  Age: 33 Year
  Sex: Female

DRUGS (3)
  1. REBIF [Suspect]
     Indication: MULTIPLE SCLEROSIS
     Dates: start: 20111207
  2. LOSARTAN [Concomitant]
     Indication: PRODUCT USED FOR UNKNOWN INDICATION
  3. FLUOXETINE [Concomitant]
     Indication: PRODUCT USED FOR UNKNOWN INDICATION

REACTIONS (10)
  - Optic neuritis [Unknown]
  - Malaise [Unknown]
  - Paraesthesia [Unknown]
  - Stress [Unknown]
  - Postpartum stress disorder [Unknown]
  - Disease progression [Unknown]
  - Asthenia [Unknown]
  - Somnolence [Unknown]
  - Pain [Unknown]
  - Pyrexia [Unknown]
